FAERS Safety Report 18232709 (Version 1)
Quarter: 2020Q3

REPORT INFORMATION
  Report Type: Spontaneous
  Country: NZ (occurrence: NZ)
  Receive Date: 20200904
  Receipt Date: 20200904
  Transmission Date: 20201103
  Serious: Yes (Other)
  Sender: FDA-Public Use
  Company Number: NZ-ELI_LILLY_AND_COMPANY-NZ202008010287

PATIENT
  Age: 17 Year
  Sex: Female

DRUGS (4)
  1. VENLAFAXINE [Concomitant]
     Active Substance: VENLAFAXINE HYDROCHLORIDE
     Indication: MIXED ANXIETY AND DEPRESSIVE DISORDER
     Dosage: 75 MG, DAILY
     Route: 048
     Dates: start: 20200501
  2. OLANZAPINE 5MG [Suspect]
     Active Substance: OLANZAPINE
     Indication: RESTLESSNESS
     Dosage: 5 MG, DAILY
     Route: 048
     Dates: start: 20200507, end: 20200508
  3. CLONIDINE. [Concomitant]
     Active Substance: CLONIDINE
     Indication: TOURETTE^S DISORDER
     Dosage: 150 MG, DAILY
     Route: 048
     Dates: start: 20200414
  4. OLANZAPINE 5MG [Suspect]
     Active Substance: OLANZAPINE
     Indication: AGITATION

REACTIONS (2)
  - Hyperhidrosis [Recovered/Resolved]
  - Tic [Recovered/Resolved]

NARRATIVE: CASE EVENT DATE: 20200509
